FAERS Safety Report 24294406 (Version 3)
Quarter: 2024Q3

REPORT INFORMATION
  Report Type: Report from Study
  Country: US (occurrence: US)
  Receive Date: 20240906
  Receipt Date: 20240924
  Transmission Date: 20241017
  Serious: Yes (Death, Other)
  Sender: TAIHO ONCOLOGY INC
  Company Number: US-TAIHOP-2024-007402

PATIENT
  Age: 73 Year
  Sex: Male

DRUGS (3)
  1. LONSURF [Suspect]
     Active Substance: TIPIRACIL HYDROCHLORIDE\TRIFLURIDINE
     Indication: Colon cancer metastatic
     Dosage: CYCLE UNKNOWN. 15MG AND 20 TABLETS
     Route: 048
     Dates: start: 202404
  2. LONSURF [Suspect]
     Active Substance: TIPIRACIL HYDROCHLORIDE\TRIFLURIDINE
     Dosage: CYCLE UNKNOWN
     Route: 048
  3. STIVARGA [Concomitant]
     Active Substance: REGORAFENIB MONOHYDRATE
     Indication: Product used for unknown indication
     Dosage: (4X21)

REACTIONS (3)
  - Disease progression [Fatal]
  - Hepatic encephalopathy [Unknown]
  - Ammonia increased [Unknown]

NARRATIVE: CASE EVENT DATE: 20240904
